FAERS Safety Report 10100740 (Version 2)
Quarter: 2014Q2

REPORT INFORMATION
  Report Type: Spontaneous
  Country: US (occurrence: US)
  Receive Date: 20140423
  Receipt Date: 20140423
  Transmission Date: 20141212
  Serious: No
  Sender: FDA-Public Use
  Company Number: US-EISAI INC-AP356-00152-SPO-US

PATIENT
  Age: 53 Year
  Sex: Female
  Weight: 84 kg

DRUGS (5)
  1. BELVIQ (LORCASERIN HYDROCHLORIDE) [Suspect]
     Indication: WEIGHT CONTROL
     Route: 048
     Dates: start: 20130918, end: 201403
  2. BELVIQ (LORCASERIN HYDROCHLORIDE) [Suspect]
     Route: 048
     Dates: start: 201403, end: 201404
  3. BELVIQ (LORCASERIN HYDROCHLORIDE) [Suspect]
     Route: 048
     Dates: start: 20140407
  4. PLAQUENIL [Concomitant]
     Indication: RHEUMATOID ARTHRITIS
     Route: 048
  5. SYNTHROID [Concomitant]
     Indication: HYPOTHYROIDISM
     Route: 048

REACTIONS (4)
  - Depressed mood [Recovered/Resolved]
  - Anxiety [Recovered/Resolved]
  - Feeling abnormal [Recovered/Resolved]
  - Headache [Recovered/Resolved]
